FAERS Safety Report 8369472-4 (Version None)
Quarter: 2012Q2

REPORT INFORMATION
  Report Type: 
  Country: None (occurrence: None)
  Receive Date: 20120518
  Receipt Date: 20120514
  Transmission Date: 20120825
  Serious: Yes (Disabling, Other)
  Sender: FDA-Public Use
  Company Number: US-PFIZER INC-2012117931

PATIENT
  Sex: Female

DRUGS (2)
  1. EFFEXOR XR [Suspect]
     Dosage: UNK
  2. EFFEXOR [Suspect]
     Indication: DEPRESSION
     Dosage: UNK

REACTIONS (7)
  - ASTHMA [None]
  - JOINT INJURY [None]
  - CARDIAC DISORDER [None]
  - OEDEMA PERIPHERAL [None]
  - NECK INJURY [None]
  - SURGERY [None]
  - PAIN [None]
